FAERS Safety Report 8111573-X (Version None)
Quarter: 2012Q1

REPORT INFORMATION
  Report Type: 
  Country: None (occurrence: None)
  Receive Date: 20120202
  Receipt Date: 20120202
  Transmission Date: 20120608
  Serious: Yes (Hospitalization)
  Sender: FDA-Public Use
  Company Number: None

PATIENT
  Age: 55 Year
  Sex: Female

DRUGS (2)
  1. LINEZOLID [Suspect]
     Dosage: 047 2 WEEKS PRIOR TO ADMIT
     Route: 048
  2. DULOXETIME HYDROCHLORIDE [Suspect]
     Dosage: 20 MG QD 047
     Route: 048

REACTIONS (6)
  - FEELING ABNORMAL [None]
  - SEROTONIN SYNDROME [None]
  - PALPITATIONS [None]
  - INSOMNIA [None]
  - AGITATION [None]
  - DRUG INTERACTION [None]
